FAERS Safety Report 7249695-8 (Version None)
Quarter: 2011Q1

REPORT INFORMATION
  Report Type: 
  Country: None (occurrence: None)
  Receive Date: 20110128
  Receipt Date: 20110117
  Transmission Date: 20110831
  Serious: Yes (Other)
  Sender: FDA-Public Use
  Company Number: US-SANOFI-AVENTIS-2011SA003560

PATIENT
  Age: 69 Year
  Sex: Male

DRUGS (7)
  1. ORAL ANTIDIABETICS [Concomitant]
  2. MULTAQ [Suspect]
     Indication: ATRIAL FIBRILLATION
     Route: 048
     Dates: start: 20091201
  3. LEVOTHYROXINE SODIUM [Concomitant]
  4. LIPITOR [Concomitant]
  5. LEVOTHYROXINE SODIUM [Concomitant]
  6. LEVOTHYROXINE SODIUM [Concomitant]
     Dates: end: 20110104
  7. LEVOTHYROXINE SODIUM [Concomitant]

REACTIONS (2)
  - ATRIAL FIBRILLATION [None]
  - BLOOD THYROID STIMULATING HORMONE INCREASED [None]
